FAERS Safety Report 7626479-X (Version None)
Quarter: 2011Q3

REPORT INFORMATION
  Report Type: 
  Country: None (occurrence: None)
  Receive Date: 20110721
  Receipt Date: 20110712
  Transmission Date: 20111222
  Serious: Yes (Hospitalization)
  Sender: FDA-Public Use
  Company Number: JP-ROCHE-782250

PATIENT
  Sex: Male
  Weight: 16 kg

DRUGS (22)
  1. PREDNISOLONE [Concomitant]
     Dosage: POWDERED MEDICINE
     Route: 048
     Dates: end: 20110127
  2. WARFARIN SODIUM [Concomitant]
     Route: 048
     Dates: start: 20100512
  3. PREDNISOLONE [Concomitant]
     Route: 048
     Dates: start: 20110323, end: 20110404
  4. PREDNISOLONE [Concomitant]
     Route: 048
     Dates: start: 20110405, end: 20110418
  5. IBRUPROFEN [Concomitant]
     Dosage: DOSE FORM: PERORAL AGENT
     Route: 048
     Dates: start: 20100501
  6. PREDNISOLONE [Concomitant]
     Route: 048
     Dates: start: 20110128, end: 20110208
  7. PREDNISOLONE [Concomitant]
     Route: 048
     Dates: start: 20110209, end: 20110222
  8. ALFAROL [Concomitant]
     Dosage: DOSE FORM: PERORAL LIQUID PREPARATION
     Route: 048
     Dates: start: 20100512
  9. PREDNISOLONE [Concomitant]
     Route: 048
     Dates: start: 20110223, end: 20110307
  10. NEORAL [Concomitant]
     Route: 048
     Dates: end: 20110413
  11. AMLODIPINE [Concomitant]
     Route: 048
     Dates: start: 20100916
  12. CALCIUM LACTATE [Concomitant]
     Dosage: DOSE FORM: POWDERED MEDICINE
     Route: 048
     Dates: start: 20101013
  13. TOCILIZUMAB [Suspect]
     Indication: JUVENILE ARTHRITIS
     Route: 041
     Dates: start: 20110112, end: 20110516
  14. TOCILIZUMAB [Suspect]
     Route: 041
     Dates: start: 20110531
  15. PREDNISOLONE [Concomitant]
     Route: 048
     Dates: start: 20110419
  16. PREDNISOLONE [Concomitant]
     Route: 048
     Dates: start: 20110308, end: 20110322
  17. CYCLOSPORINE [Concomitant]
     Route: 048
     Dates: start: 20110414, end: 20110517
  18. CANDESARTAN CILEXETIL [Concomitant]
     Route: 048
     Dates: start: 20100904
  19. NEORAL [Concomitant]
     Route: 048
     Dates: start: 20110414, end: 20110517
  20. CYCLOSPORINE [Concomitant]
     Dosage: FORM: PERORAL AGENT
     Route: 048
     Dates: end: 20110413
  21. FAMOTIDINE [Concomitant]
     Route: 048
     Dates: start: 20100512
  22. LASIX [Concomitant]
     Dosage: DOSE FORM: MINUTE GRAIN
     Route: 048
     Dates: start: 20101111

REACTIONS (1)
  - INTUSSUSCEPTION [None]
